FAERS Safety Report 10877996 (Version 1)
Quarter: 2015Q1

REPORT INFORMATION
  Report Type: Spontaneous
  Country: JP (occurrence: None)
  Receive Date: 20150224
  Receipt Date: 20150224
  Transmission Date: 20150721
  Serious: Yes (Hospitalization)
  Sender: FDA-Public Use
  Company Number: JP-2015VAL000157

PATIENT
  Age: 35 Year
  Sex: Female

DRUGS (3)
  1. OXYTOCIN. [Suspect]
     Active Substance: OXYTOCIN
     Indication: UTERINE HAEMORRHAGE
     Route: 042
  2. PROSTAGLANDIN F2 ALPHA [Suspect]
     Active Substance: DINOPROST
     Indication: UTERINE HAEMORRHAGE
     Route: 015
  3. METHYLERGONOVINE MALEATE. [Suspect]
     Active Substance: METHYLERGONOVINE MALEATE
     Indication: UTERINE HAEMORRHAGE
     Route: 042

REACTIONS (4)
  - Uterine atony [None]
  - Disease recurrence [None]
  - Disseminated intravascular coagulation [None]
  - Uterine haemorrhage [None]

NARRATIVE: CASE EVENT DATE: 20150212
